FAERS Safety Report 5941908-5 (Version None)
Quarter: 2008Q4

REPORT INFORMATION
  Report Type: 
  Country: None (occurrence: None)
  Receive Date: 20081105
  Receipt Date: 20081029
  Transmission Date: 20090506
  Serious: Yes (Other)
  Sender: FDA-Public Use
  Company Number: US-ASTRAZENECA-2008UW20636

PATIENT
  Age: 8 Year
  Sex: Female
  Weight: 26.6 kg

DRUGS (3)
  1. PULMICORT FLEXHALER [Suspect]
     Indication: COUGH
     Dosage: 180 MCG, 1 PUFF TWICE DAILY
     Route: 055
     Dates: start: 20080807, end: 20080928
  2. PULMICORT FLEXHALER [Suspect]
     Indication: BRONCHIAL HYPERREACTIVITY
     Dosage: 180 MCG, 1 PUFF TWICE DAILY
     Route: 055
     Dates: start: 20080807, end: 20080928
  3. MULTI-VITAMINS [Concomitant]

REACTIONS (6)
  - ANXIETY [None]
  - DEPRESSED MOOD [None]
  - HALLUCINATION [None]
  - PSYCHOTIC DISORDER [None]
  - SLEEP DISORDER [None]
  - SOCIAL AVOIDANT BEHAVIOUR [None]
